FAERS Safety Report 11047844 (Version 1)
Quarter: 2015Q2

REPORT INFORMATION
  Report Type: Spontaneous
  Country: US (occurrence: US)
  Receive Date: 20150420
  Receipt Date: 20150420
  Transmission Date: 20150821
  Serious: No
  Sender: FDA-Public Use
  Company Number: US-BIOGENIDEC-2015BI039674

PATIENT
  Sex: Female

DRUGS (1)
  1. AVONEX [Suspect]
     Active Substance: INTERFERON BETA-1A
     Indication: MULTIPLE SCLEROSIS
     Route: 030
     Dates: start: 2010

REACTIONS (25)
  - Drug titration error [Recovered/Resolved]
  - General symptom [Unknown]
  - Multiple sclerosis relapse [Not Recovered/Not Resolved]
  - Abdominal pain [Unknown]
  - Asthenia [Unknown]
  - Neck pain [Unknown]
  - Chills [Unknown]
  - Cardiovascular disorder [Unknown]
  - Back pain [Unknown]
  - Abdominal distension [Unknown]
  - Suicidal ideation [Recovered/Resolved]
  - Arthralgia [Unknown]
  - Autonomic neuropathy [Unknown]
  - Cognitive disorder [Unknown]
  - Blood pressure immeasurable [Unknown]
  - Visual impairment [Unknown]
  - Gastrointestinal disorder [Unknown]
  - Syncope [Unknown]
  - Pain [Unknown]
  - Nervous system disorder [Unknown]
  - Multiple sclerosis [Unknown]
  - Hearing impaired [Unknown]
  - Headache [Unknown]
  - Adverse reaction [Unknown]
  - Injection site haemorrhage [Unknown]

NARRATIVE: CASE EVENT DATE: 2010
